FAERS Safety Report 4427550-6 (Version None)
Quarter: 2004Q3

REPORT INFORMATION
  Report Type: 
  Country: None (occurrence: None)
  Receive Date: 20040817
  Receipt Date: 20020516
  Transmission Date: 20050211
  Serious: Yes (Disabling, Other)
  Sender: FDA-Public Use
  Company Number: US-MERCK-0205USA02094

PATIENT
  Age: 76 Year
  Sex: Female
  Weight: 68 kg

DRUGS (9)
  1. ASPIRIN [Concomitant]
     Route: 065
     Dates: start: 20020301
  2. COSOPT [Concomitant]
     Indication: GLAUCOMA
     Route: 065
     Dates: start: 19990101
  3. XALATAN [Concomitant]
     Indication: GLAUCOMA
     Route: 065
     Dates: start: 19990101
  4. SYNTHROID [Concomitant]
     Indication: THYROID DISORDER
     Route: 065
  5. COZAAR [Concomitant]
     Indication: CARDIAC MURMUR
     Route: 065
     Dates: start: 20010301
  6. NAPROSYN [Concomitant]
     Route: 065
     Dates: start: 19920420
  7. NITRO-DUR [Concomitant]
     Route: 065
     Dates: start: 19920101
  8. PRILOSEC [Concomitant]
     Route: 065
  9. VIOXX [Suspect]
     Route: 048
     Dates: start: 20001228, end: 20010101

REACTIONS (10)
  - ANAEMIA [None]
  - ARTHROPATHY [None]
  - CARDIAC MURMUR [None]
  - FEELING COLD [None]
  - GASTRIC HAEMORRHAGE [None]
  - HAEMORRHAGE [None]
  - HEADACHE [None]
  - HOT FLUSH [None]
  - HYPERTENSION [None]
  - MYOCARDIAL INFARCTION [None]
